FAERS Safety Report 7870408-0 (Version None)
Quarter: 2011Q4

REPORT INFORMATION
  Report Type: 
  Country: None (occurrence: None)
  Receive Date: 20111029
  Receipt Date: 20110309
  Transmission Date: 20120403
  Serious: No
  Sender: FDA-Public Use
  Company Number: US-AMGEN-USASP2011013215

PATIENT
  Sex: Male

DRUGS (1)
  1. ENBREL [Suspect]
     Indication: PSORIASIS
     Dates: start: 20080221

REACTIONS (8)
  - OROPHARYNGEAL PAIN [None]
  - RHINORRHOEA [None]
  - PYREXIA [None]
  - HEADACHE [None]
  - PSORIASIS [None]
  - EAR PAIN [None]
  - COUGH [None]
  - MALAISE [None]
